FAERS Safety Report 5274975-5 (Version None)
Quarter: 2007Q1

REPORT INFORMATION
  Report Type: 
  Country: None (occurrence: None)
  Receive Date: 20061207
  Receipt Date: 20060109
  Transmission Date: 20070707
  Serious: Yes (Hospitalization)
  Sender: FDA-Public Use
  Company Number: 2006UW00385

PATIENT
  Age: 70 Year
  Sex: Male
  Weight: 77.11 kg

DRUGS (3)
  1. TOPROL-XL [Suspect]
     Indication: VENOUS THROMBOSIS
     Dosage: 25 MG PO
     Route: 048
  2. LIPITOR [Concomitant]
  3. CLONAZEPAM [Concomitant]

REACTIONS (5)
  - ALOPECIA [None]
  - HAIR COLOUR CHANGES [None]
  - HEART RATE DECREASED [None]
  - HYPERHIDROSIS [None]
  - LOSS OF CONSCIOUSNESS [None]
